FAERS Safety Report 4931761-0 (Version None)
Quarter: 2006Q1

REPORT INFORMATION
  Report Type: 
  Country: None (occurrence: None)
  Receive Date: 20060303
  Receipt Date: 20060228
  Transmission Date: 20060701
  Serious: Yes (Hospitalization)
  Sender: FDA-Public Use
  Company Number: GB-BOEHRINGER INGELHEIM PHARMACEUTICALS, INC.-2006-UK-00844UK

PATIENT
  Age: 79 Year
  Sex: Male

DRUGS (10)
  1. MOBIC [Suspect]
     Route: 048
     Dates: start: 20060109, end: 20060206
  2. CANDESARTAN [Concomitant]
     Route: 048
  3. DOXAZOSIN [Concomitant]
     Route: 048
  4. CLOPIDOGREL [Concomitant]
     Route: 048
  5. ROSUVASTATIN [Concomitant]
     Route: 048
  6. RIVASTIGMINE [Concomitant]
     Route: 048
  7. AMLODIPINE [Concomitant]
     Route: 048
  8. ESOMEPRAZOLE [Concomitant]
     Route: 048
  9. AMITRIPTYLINE HCL [Concomitant]
     Route: 048
  10. TEMAZEPAM [Concomitant]
     Route: 048

REACTIONS (4)
  - DUODENITIS [None]
  - GASTRIC ULCER [None]
  - HAEMOGLOBIN DECREASED [None]
  - MELAENA [None]
